FAERS Safety Report 11615240 (Version 1)
Quarter: 2015Q4

REPORT INFORMATION
  Report Type: Spontaneous
  Country: US (occurrence: None)
  Receive Date: 20151008
  Receipt Date: 20151008
  Transmission Date: 20160304
  Serious: Yes (Disabling)
  Sender: FDA-Public Use
  Company Number: None

PATIENT
  Age: 46 Year
  Sex: Female
  Weight: 89.36 kg

DRUGS (20)
  1. PROPARACAINE HYDROCHLORIDE. [Suspect]
     Active Substance: PROPARACAINE HYDROCHLORIDE
     Indication: OPHTHALMOLOGICAL EXAMINATION
     Dosage: NUMBING DROPS, ONCE HEAR INTO THE EYE
     Route: 047
  2. DIOVAN [Concomitant]
     Active Substance: VALSARTAN
  3. ALPHA LIPOIC ACID [Concomitant]
     Active Substance: .ALPHA.-LIPOIC ACID
  4. MULTIVITAMIN [Concomitant]
     Active Substance: VITAMINS
  5. VITAMIN B COMPLEX [Concomitant]
     Active Substance: CYANOCOBALAMIN\DEXPANTHENOL\NIACINAMIDE\PYRIDOXINE HYDROCHLORIDE\RIBOFLAVIN 5^-PHOSPHATE SODIUM\THIAMINE HYDROCHLORIDE\VITAMIN B COMPLEX
  6. EPIPEN [Concomitant]
     Active Substance: EPINEPHRINE
  7. FOLITAB [Concomitant]
  8. METFORMIN [Concomitant]
     Active Substance: METFORMIN HYDROCHLORIDE
  9. ULTRAM [Concomitant]
     Active Substance: TRAMADOL HYDROCHLORIDE
  10. BLOOD GLUCOSE TEST STRIPS [Concomitant]
  11. VENTOLIN [Concomitant]
     Active Substance: ALBUTEROL SULFATE
  12. FREESTYLE LANCETS [Concomitant]
  13. CLARITIN [Concomitant]
     Active Substance: LORATADINE
  14. TROPICAMIDE AND PHENYLEPHRINE [Suspect]
     Active Substance: PHENYLEPHRINE\TROPICAMIDE
     Indication: MYDRIASIS
     Dosage: EYE EXAMINATION
     Route: 047
  15. CYMBALTA [Concomitant]
     Active Substance: DULOXETINE HYDROCHLORIDE
  16. FLEXERIL [Concomitant]
     Active Substance: CYCLOBENZAPRINE HYDROCHLORIDE
  17. POTASSIUM [Concomitant]
     Active Substance: POTASSIUM
  18. CALCIUM/MAGNESIUM/VITAMIN D [Concomitant]
  19. PROPARACAINE HYDROCHLORIDE. [Suspect]
     Active Substance: PROPARACAINE HYDROCHLORIDE
     Indication: HYPOAESTHESIA EYE
     Dosage: NUMBING DROPS, ONCE HEAR INTO THE EYE
     Route: 047
  20. FLOVENT [Concomitant]
     Active Substance: FLUTICASONE PROPIONATE

REACTIONS (7)
  - Ocular hyperaemia [None]
  - Product substitution issue [None]
  - Product quality issue [None]
  - Eye irritation [None]
  - Conjunctivitis [None]
  - Lacrimation increased [None]
  - Foreign body sensation in eyes [None]

NARRATIVE: CASE EVENT DATE: 20150928
